FAERS Safety Report 9796789 (Version 2)
Quarter: 2014Q1

REPORT INFORMATION
  Report Type: Report from Study
  Country: PR (occurrence: PR)
  Receive Date: 20140103
  Receipt Date: 20140103
  Transmission Date: 20141002
  Serious: Yes (Hospitalization, Other)
  Sender: FDA-Public Use
  Company Number: PR-ABBVIE-13P-131-1153252-00

PATIENT
  Age: 55 Year
  Sex: Female

DRUGS (16)
  1. HUMIRA [Suspect]
     Indication: RHEUMATOID ARTHRITIS
     Route: 058
  2. PREDNISONE [Concomitant]
     Indication: PRODUCT USED FOR UNKNOWN INDICATION
     Route: 048
  3. METHOTREXATE [Concomitant]
     Indication: PRODUCT USED FOR UNKNOWN INDICATION
     Route: 048
  4. FOLIC ACID [Concomitant]
     Indication: VITAMIN SUPPLEMENTATION
     Route: 048
  5. ALLEGRA [Concomitant]
     Indication: HYPERSENSITIVITY
     Dosage: 1 TABLET AS REQUIRED
     Route: 048
  6. UNKNOWN MEDICATION [Concomitant]
     Indication: PROPHYLAXIS
     Dosage: TAKE 1 TABLET 1 HOUR BEFORE THE DENTIST^S VISIT
     Route: 048
  7. ADVAIR [Concomitant]
     Indication: ASTHMA
     Route: 055
     Dates: start: 2005
  8. PROZAC [Concomitant]
     Indication: BIPOLAR I DISORDER
     Route: 048
     Dates: start: 2005
  9. ATIVAN [Concomitant]
     Indication: ANXIETY
     Route: 048
     Dates: start: 2005
  10. SEROQUEL XR [Concomitant]
     Indication: DEPRESSION
     Dosage: 1 TABLET AT BEDTIME
     Route: 048
     Dates: start: 2005
  11. ZOCOR [Concomitant]
     Indication: HYPERCHOLESTEROLAEMIA
     Route: 048
  12. RESTORIL [Concomitant]
     Indication: SLEEP DISORDER THERAPY
     Dosage: 1 TABLET AT BEDTIME
     Route: 048
  13. GABAPENTIN [Concomitant]
     Indication: PRODUCT USED FOR UNKNOWN INDICATION
     Dosage: 1 TABLET AT BEDTIME
     Route: 048
     Dates: start: 2010
  14. TRENTAL [Concomitant]
     Indication: PRODUCT USED FOR UNKNOWN INDICATION
     Route: 048
     Dates: start: 2010
  15. ARIMIDEX [Concomitant]
     Indication: PRODUCT USED FOR UNKNOWN INDICATION
     Route: 048
     Dates: start: 2012
  16. ENALAPRIL [Concomitant]
     Indication: HYPERTENSION
     Route: 048
     Dates: start: 201309

REACTIONS (6)
  - Hip arthroplasty [Recovered/Resolved]
  - Knee arthroplasty [Unknown]
  - Anaemia [Unknown]
  - Limb deformity [Not Recovered/Not Resolved]
  - Arthralgia [Recovered/Resolved]
  - Exostosis [Not Recovered/Not Resolved]
